FAERS Safety Report 4470509-3 (Version None)
Quarter: 2004Q4

REPORT INFORMATION
  Report Type: 
  Country: None (occurrence: None)
  Receive Date: 20041001
  Receipt Date: 20040920
  Transmission Date: 20050328
  Serious: Yes (Death)
  Sender: FDA-Public Use
  Company Number: M2004-1341

PATIENT
  Age: 97 Year
  Sex: Female

DRUGS (8)
  1. ATENOLOL [Suspect]
     Indication: HYPERTENSION
     Dosage: 25 MG DAILY
  2. AMIODARONE HCL [Suspect]
     Indication: ARRHYTHMIA
     Dosage: 100 MG DAILY
  3. ISOSORBIDE [Concomitant]
  4. THYROXINE [Concomitant]
  5. ASPIRIN [Concomitant]
  6. BENDROFLUAZIDE [Concomitant]
  7. PARACETAMOL [Concomitant]
  8. NITROGLYCERIN [Concomitant]

REACTIONS (1)
  - BRADYCARDIA [None]
